FAERS Safety Report 8856715 (Version 1)
Quarter: 2012Q4

REPORT INFORMATION
  Report Type: Spontaneous
  Country: IT (occurrence: None)
  Receive Date: 20121019
  Receipt Date: 20121019
  Transmission Date: 20130627
  Serious: Yes (Hospitalization)
  Sender: FDA-Public Use
  Company Number: AUR-APL-2012-04465

PATIENT
  Age: 50 Year
  Sex: Male

DRUGS (4)
  1. AMLODIPINE (AMLODIPINE) [Suspect]
     Indication: DRUG USE FOR UNKNOWN INDICATION
     Dates: start: 20120928, end: 20120928
  2. EFEXOR [Suspect]
     Indication: DRUG USE FOR UNKNOWN INDICATION
     Dates: start: 20120928, end: 20120928
  3. XERISTAR [Suspect]
     Indication: DRUG USE FOR UNKNOWN INDICATION
     Dates: start: 20120928, end: 20120928
  4. BRIFIL [Suspect]
     Indication: DRUG USE FOR UNKNOWN INDICATION
     Dates: start: 20120928, end: 20120928

REACTIONS (2)
  - Toxicity to various agents [None]
  - Poisoning deliberate [None]
